FAERS Safety Report 7686390-5 (Version None)
Quarter: 2011Q3

REPORT INFORMATION
  Report Type: 
  Country: None (occurrence: None)
  Receive Date: 20110816
  Receipt Date: 20110803
  Transmission Date: 20111222
  Serious: Yes (Hospitalization, Other)
  Sender: FDA-Public Use
  Company Number: JP-ELI_LILLY_AND_COMPANY-JP201102007351

PATIENT
  Sex: Male
  Weight: 2.81 kg

DRUGS (8)
  1. RISPERDAL [Concomitant]
     Indication: BIPOLAR I DISORDER
     Dosage: 4 MG, DAILY (1/D)
     Route: 064
     Dates: start: 20101003, end: 20101007
  2. HIRNAMIN [Concomitant]
     Dosage: 15 MG, DAILY (1/D)
     Route: 064
     Dates: start: 20100930, end: 20110214
  3. RISPERDAL [Concomitant]
     Dosage: 4 MG, DAILY (1/D)
     Route: 064
     Dates: start: 20101003, end: 20101007
  4. ZYPREXA [Suspect]
     Dosage: 20 MG, DAILY (1/D)
     Route: 064
     Dates: start: 20100827, end: 20110214
  5. HIRNAMIN [Concomitant]
     Indication: INSOMNIA
     Dosage: 15 MG, DAILY (1/D)
     Route: 064
     Dates: start: 20100930, end: 20110214
  6. ZOLPIDEM [Concomitant]
     Indication: INSOMNIA
     Dosage: 5 MG, DAILY (1/D)
     Route: 064
     Dates: start: 20100930, end: 20110214
  7. ZYPREXA [Suspect]
     Indication: BIPOLAR I DISORDER
     Dosage: 20 MG, DAILY (1/D)
     Route: 064
     Dates: start: 20100827, end: 20110214
  8. ZOLPIDEM [Concomitant]
     Dosage: 5 MG, DAILY (1/D)
     Route: 064
     Dates: start: 20100930, end: 20110214

REACTIONS (4)
  - VOMITING NEONATAL [None]
  - MATERNAL EXPOSURE DURING PREGNANCY [None]
  - NEONATAL RESPIRATORY ARREST [None]
  - DEHYDRATION [None]
